FAERS Safety Report 14216249 (Version 1)
Quarter: 2017Q4

REPORT INFORMATION
  Report Type: Report from Study
  Country: AU (occurrence: AU)
  Receive Date: 20171122
  Receipt Date: 20171122
  Transmission Date: 20180321
  Serious: Yes (Other)
  Sender: FDA-Public Use
  Company Number: PHHY2017AU129091

PATIENT
  Sex: Female

DRUGS (1)
  1. SANDOSTATIN LAR DEPOT [Suspect]
     Active Substance: OCTREOTIDE ACETATE
     Indication: CARCINOID SYNDROME
     Dosage: 30 MG, UNK
     Route: 030

REACTIONS (6)
  - Fall [Recovering/Resolving]
  - Vision blurred [Unknown]
  - Contusion [Recovering/Resolving]
  - Pain [Recovering/Resolving]
  - Eye injury [Recovering/Resolving]
  - Retinal artery occlusion [Unknown]
